FAERS Safety Report 5705763-0 (Version None)
Quarter: 2008Q2

REPORT INFORMATION
  Report Type: 
  Country: None (occurrence: None)
  Receive Date: 20080411
  Receipt Date: 20080404
  Transmission Date: 20081010
  Serious: Yes (Other)
  Sender: FDA-Public Use
  Company Number: 18894

PATIENT
  Age: 72 Year
  Sex: Female

DRUGS (1)
  1. METHOTREXATE [Suspect]
     Indication: DERMATOMYOSITIS

REACTIONS (6)
  - B-CELL LYMPHOMA [None]
  - BACK PAIN [None]
  - COMPRESSION FRACTURE [None]
  - EPSTEIN-BARR VIRUS INFECTION [None]
  - MUSCULOSKELETAL CHEST PAIN [None]
  - PATHOLOGICAL FRACTURE [None]
